FAERS Safety Report 7212041-X (Version None)
Quarter: 2010Q4

REPORT INFORMATION
  Report Type: 
  Country: None (occurrence: None)
  Receive Date: 20101229
  Receipt Date: 20101217
  Transmission Date: 20110411
  Serious: Yes (Other)
  Sender: FDA-Public Use
  Company Number: US-ACCORD-007361

PATIENT
  Age: 60 Year
  Sex: Female
  Weight: 81 kg

DRUGS (6)
  1. SIMVASTATIN [Suspect]
     Indication: HYPERCHOLESTEROLAEMIA
     Dosage: 40.00-MG-1.00PER -1.0DAYS / ORAL
     Route: 048
     Dates: start: 20100501
  2. COQ10(COQ10) [Concomitant]
  3. AZITHROMYCIN [Concomitant]
  4. CLINDAMYCIN [Concomitant]
  5. AMOXICILLIN [Concomitant]
  6. CLARITIN(CLARITIN) [Concomitant]

REACTIONS (1)
  - BLOOD CHOLESTEROL INCREASED [None]
